FAERS Safety Report 4620431-4 (Version None)
Quarter: 2005Q1

REPORT INFORMATION
  Report Type: 
  Country: None (occurrence: None)
  Receive Date: 20050328
  Receipt Date: 20050322
  Transmission Date: 20050727
  Serious: Yes (Hospitalization)
  Sender: FDA-Public Use
  Company Number: NL-MERCK-0503NLD00035

PATIENT
  Age: 50 Year
  Sex: Male

DRUGS (4)
  1. VIOXX [Suspect]
     Indication: RHEUMATOID ARTHRITIS
     Route: 048
     Dates: start: 20010312, end: 20040720
  2. ATENOLOL [Concomitant]
     Route: 048
     Dates: start: 19990928, end: 20050301
  3. IRBESARTAN [Concomitant]
     Route: 048
     Dates: start: 20011024, end: 20021118
  4. TRIAMCINOLONE [Concomitant]
     Route: 051
     Dates: start: 20020101

REACTIONS (1)
  - ANGINA PECTORIS [None]
